FAERS Safety Report 23658641 (Version 1)
Quarter: 2024Q1

REPORT INFORMATION
  Report Type: Spontaneous
  Country: US (occurrence: US)
  Receive Date: 20240321
  Receipt Date: 20240321
  Transmission Date: 20240409
  Serious: Yes (Other)
  Sender: FDA-Public Use
  Company Number: US-SANDOZ-SDZ2024US030497

PATIENT
  Age: 67 Year
  Sex: Female

DRUGS (8)
  1. PROLIA [Suspect]
     Active Substance: DENOSUMAB
     Indication: Osteoporosis
     Dosage: 60 MG, Q6MO
     Route: 058
     Dates: start: 201903, end: 202105
  2. PROLIA [Suspect]
     Active Substance: DENOSUMAB
     Dosage: 60 MG, Q6MO
     Route: 058
     Dates: start: 202301
  3. RECLAST [Suspect]
     Active Substance: ZOLEDRONIC ACID
     Indication: Product used for unknown indication
     Route: 065
  4. ATORVASTATIN CALCIUM [Concomitant]
     Active Substance: ATORVASTATIN CALCIUM
     Indication: Product used for unknown indication
     Route: 065
  5. CALCITRIOL [Concomitant]
     Active Substance: CALCITRIOL
     Indication: Product used for unknown indication
     Route: 065
  6. HYDROCODONE [Concomitant]
     Active Substance: HYDROCODONE
     Indication: Product used for unknown indication
     Route: 065
  7. VITAMIN D3 [Concomitant]
     Active Substance: CHOLECALCIFEROL
     Indication: Product used for unknown indication
     Route: 065
  8. VITAMIN D3 [Concomitant]
     Active Substance: CHOLECALCIFEROL
     Indication: Product used for unknown indication
     Route: 065

REACTIONS (11)
  - Nephrolithiasis [Unknown]
  - Hyperparathyroidism [Unknown]
  - Hypercalciuria [Unknown]
  - Blood alkaline phosphatase increased [Unknown]
  - Vitamin D deficiency [Unknown]
  - Gait disturbance [Unknown]
  - Foot fracture [Unknown]
  - Back disorder [Unknown]
  - Hypocalcaemia [Unknown]
  - Arthritis [Unknown]
  - Fatigue [Unknown]
